FAERS Safety Report 18333074 (Version 1)
Quarter: 2020Q3

REPORT INFORMATION
  Report Type: Other
  Country: US (occurrence: US)
  Receive Date: 20200930
  Receipt Date: 20200930
  Transmission Date: 20201103
  Serious: Yes (Other)
  Sender: FDA-Public Use
  Company Number: US-ROCHE-2687036

PATIENT
  Sex: Female

DRUGS (1)
  1. RITUXIMAB. [Suspect]
     Active Substance: RITUXIMAB
     Indication: NON-HODGKIN^S LYMPHOMA
     Dosage: SINGLE DOSE
     Route: 042

REACTIONS (4)
  - Blood lactate dehydrogenase increased [Recovering/Resolving]
  - Thrombocytopenia [Recovering/Resolving]
  - Blood uric acid increased [Recovering/Resolving]
  - Haemoglobin decreased [Recovering/Resolving]
